FAERS Safety Report 6697223-8 (Version None)
Quarter: 2010Q2

REPORT INFORMATION
  Report Type: 
  Country: None (occurrence: None)
  Receive Date: 20100426
  Receipt Date: 20100416
  Transmission Date: 20101027
  Serious: Yes (Other)
  Sender: FDA-Public Use
  Company Number: US-PFIZER INC-2010044220

PATIENT
  Sex: Female
  Weight: 47.6 kg

DRUGS (3)
  1. DEPO-PROVERA [Suspect]
     Dosage: 150 MG, EVERY 3 MONTHS
     Route: 030
     Dates: start: 20090212
  2. ALESSE [Suspect]
     Indication: MENORRHAGIA
     Dosage: UNK
     Dates: start: 20090530, end: 20091201
  3. ALESSE [Suspect]
     Dosage: DOSE INCREASED

REACTIONS (3)
  - BLOOD PRESSURE INCREASED [None]
  - MENORRHAGIA [None]
  - RASH [None]
